FAERS Safety Report 6085703-8 (Version None)
Quarter: 2009Q1

REPORT INFORMATION
  Report Type: 
  Country: None (occurrence: None)
  Receive Date: 20090220
  Receipt Date: 20081204
  Transmission Date: 20090719
  Serious: Yes (Death, Other)
  Sender: FDA-Public Use
  Company Number: PHHY2008CA26267

PATIENT
  Sex: Male

DRUGS (5)
  1. TASIGNA [Suspect]
     Indication: ACUTE LYMPHOCYTIC LEUKAEMIA
     Dosage: 400 MG, BID
     Route: 048
     Dates: start: 20080811
  2. TASIGNA [Suspect]
     Indication: CHROMOSOME ANALYSIS ABNORMAL
  3. DASATINIB [Concomitant]
  4. VINCRISTINE [Concomitant]
  5. PREDNISONE [Concomitant]

REACTIONS (3)
  - ACUTE LYMPHOCYTIC LEUKAEMIA [None]
  - DISEASE PROGRESSION [None]
  - DRUG INEFFECTIVE [None]
